FAERS Safety Report 24333082 (Version 1)
Quarter: 2024Q3

REPORT INFORMATION
  Report Type: Spontaneous
  Country: US (occurrence: None)
  Receive Date: 20240917
  Receipt Date: 20240917
  Transmission Date: 20241016
  Serious: Yes (Disabling)
  Sender: Public
  Company Number: None

PATIENT
  Age: 70 Year
  Sex: Female
  Weight: 60.75 kg

DRUGS (12)
  1. OZEMPIC [Suspect]
     Active Substance: SEMAGLUTIDE
     Indication: Type 2 diabetes mellitus
     Dosage: OTHER QUANTITY : 1 INJECTION(S);?OTHER FREQUENCY : ONCE WEEKLY;?
     Route: 058
  2. METFORMIN [Concomitant]
  3. BUPROPION [Concomitant]
  4. PRIMIDONE [Concomitant]
  5. LEVOTHYROXINE [Concomitant]
     Active Substance: LEVOTHYROXINE\LEVOTHYROXINE SODIUM
  6. ATORVASTATIN [Concomitant]
  7. famotiodine [Concomitant]
  8. multivitamin [Concomitant]
  9. FISH OIL [Concomitant]
  10. NM-6603 [Concomitant]
     Active Substance: NM-6603
  11. ASPIRIN [Concomitant]
     Active Substance: ASPIRIN
  12. FLUOXETINE [Concomitant]

REACTIONS (2)
  - Ischaemia [None]
  - Visual impairment [None]

NARRATIVE: CASE EVENT DATE: 20221028
